FAERS Safety Report 19082004 (Version 10)
Quarter: 2021Q4

REPORT INFORMATION
  Report Type: Report from Study
  Country: US (occurrence: US)
  Receive Date: 20210401
  Receipt Date: 20211102
  Transmission Date: 20220303
  Serious: No
  Sender: FDA-Public Use
  Company Number: NVSC2021US070653

PATIENT
  Sex: Female

DRUGS (3)
  1. COSENTYX [Suspect]
     Active Substance: SECUKINUMAB
     Indication: Psoriasis
     Dosage: 300 MG, QMO (BENEATH THE SKIN, USALLY VIA INJECTION)
     Route: 058
  2. COSENTYX [Suspect]
     Active Substance: SECUKINUMAB
     Dosage: 300 MG, QMO
     Route: 058
  3. COSENTYX [Suspect]
     Active Substance: SECUKINUMAB
     Dosage: 150 MG (QMO)
     Route: 058

REACTIONS (18)
  - Alopecia [Unknown]
  - Skin injury [Unknown]
  - Insomnia [Unknown]
  - Scratch [Unknown]
  - Skin discharge [Unknown]
  - Hypertension [Unknown]
  - Pain in extremity [Unknown]
  - Burning sensation [Unknown]
  - Erythema [Unknown]
  - Rash erythematous [Unknown]
  - Pruritus [Unknown]
  - Weight increased [Unknown]
  - Pain of skin [Unknown]
  - Formication [Unknown]
  - Acrochordon [Unknown]
  - Subcutaneous abscess [Unknown]
  - Psoriasis [Unknown]
  - Drug ineffective [Unknown]
